FAERS Safety Report 16275030 (Version 1)
Quarter: 2019Q2

REPORT INFORMATION
  Report Type: Spontaneous
  Country: US (occurrence: US)
  Receive Date: 20190503
  Receipt Date: 20190503
  Transmission Date: 20190711
  Serious: Yes (Disabling)
  Sender: FDA-Public Use
  Company Number: None

PATIENT
  Age: 66 Year
  Sex: Female
  Weight: 65.7 kg

DRUGS (1)
  1. AIMOVIG [Suspect]
     Active Substance: ERENUMAB-AOOE
     Indication: MIGRAINE
     Dosage: ?          QUANTITY:1 INJECTION(S);?
     Route: 030
     Dates: start: 20190406

REACTIONS (11)
  - Pain in extremity [None]
  - Cold-stimulus headache [None]
  - Cough [None]
  - Skin discolouration [None]
  - Poor peripheral circulation [None]
  - Mobility decreased [None]
  - Fatigue [None]
  - Loss of personal independence in daily activities [None]
  - Thinking abnormal [None]
  - Back pain [None]
  - Constipation [None]

NARRATIVE: CASE EVENT DATE: 20190406
